FAERS Safety Report 8355905-6 (Version None)
Quarter: 2012Q2

REPORT INFORMATION
  Report Type: 
  Country: None (occurrence: None)
  Receive Date: 20120514
  Receipt Date: 20120504
  Transmission Date: 20120825
  Serious: Yes (Life-Threatening, Hospitalization)
  Sender: FDA-Public Use
  Company Number: US-BAYER-2012-014317

PATIENT
  Age: 32 Year
  Sex: Female

DRUGS (6)
  1. LORTAB [Concomitant]
     Dosage: 5/500 MG EVERY 4 HRS PRN
  2. ACIPHEX [Concomitant]
     Indication: GASTROOESOPHAGEAL REFLUX DISEASE
     Dosage: 20 MG, QD
  3. OMEGA-3 FATTY ACIDS [Concomitant]
  4. XANAX [Concomitant]
     Dosage: 0.25 MG, QD
  5. MULTI-DAY PLUS MINERAL [Concomitant]
  6. DROSPIRENONE AND ETHINYL ESTRADIOL [Suspect]
     Dosage: UNK
     Route: 048

REACTIONS (5)
  - PAIN [None]
  - FEAR OF DISEASE [None]
  - PULMONARY EMBOLISM [None]
  - ANXIETY [None]
  - ANHEDONIA [None]
